FAERS Safety Report 8190287 (Version 3)
Quarter: 2014Q1

REPORT INFORMATION
  Report Type: Report from Study
  Country: JP (occurrence: JP)
  Receive Date: 20111019
  Receipt Date: 20140122
  Transmission Date: 20141002
  Serious: Yes (Other)
  Sender: FDA-Public Use
  Company Number: JP-ROCHE-1004141

PATIENT
  Sex: 0

DRUGS (1)
  1. TOCILIZUMAB [Suspect]
     Indication: RHEUMATOID ARTHRITIS
     Route: 065

REACTIONS (18)
  - Pneumonia [Unknown]
  - Skin infection [Unknown]
  - Oesophageal candidiasis [Unknown]
  - Cerebral haemorrhage [Unknown]
  - Breast cancer [Unknown]
  - Cervix carcinoma [Unknown]
  - Acute respiratory failure [Unknown]
  - Myocardial infarction [Unknown]
  - Pancreatitis necrotising [Unknown]
  - Gastrointestinal haemorrhage [Unknown]
  - Gastrointestinal perforation [Unknown]
  - Anaphylactic reaction [Unknown]
  - Rash [Unknown]
  - Scleroderma [Unknown]
  - Chest pain [Unknown]
  - Skin ulcer [Unknown]
  - Blood bilirubin increased [Unknown]
  - Pancytopenia [Unknown]
